FAERS Safety Report 15412821 (Version 2)
Quarter: 2018Q4

REPORT INFORMATION
  Report Type: Not Available
  Country: US (occurrence: US)
  Receive Date: 20180921
  Receipt Date: 20181008
  Transmission Date: 20190204
  Serious: Yes (Hospitalization, Other)
  Sender: FDA-Public Use
  Company Number: US-NEUROCRINE BIOSCIENCES INC.-2018NBI02804

PATIENT
  Sex: Female

DRUGS (15)
  1. VITAMIN D [Concomitant]
     Active Substance: CHOLECALCIFEROL
  2. LITHIUM. [Concomitant]
     Active Substance: LITHIUM
  3. FORMA RAY [Concomitant]
  4. RISPERDAL [Concomitant]
     Active Substance: RISPERIDONE
  5. XANAX [Concomitant]
     Active Substance: ALPRAZOLAM
  6. FISH OIL [Concomitant]
     Active Substance: FISH OIL
  7. GABAPENTIN. [Concomitant]
     Active Substance: GABAPENTIN
  8. INGREZZA [Suspect]
     Active Substance: VALBENAZINE
     Indication: DYSKINESIA
  9. AMBIEN [Concomitant]
     Active Substance: ZOLPIDEM TARTRATE
  10. PERCOCET [Concomitant]
     Active Substance: ACETAMINOPHEN\OXYCODONE HYDROCHLORIDE
  11. MIRAPEX [Concomitant]
     Active Substance: PRAMIPEXOLE DIHYDROCHLORIDE
  12. MULTIVITAMIN [Concomitant]
     Active Substance: VITAMINS
  13. INGREZZA [Suspect]
     Active Substance: VALBENAZINE
     Route: 048
     Dates: start: 20180611
  14. IBUPROFEN. [Concomitant]
     Active Substance: IBUPROFEN
  15. CELEXA [Concomitant]
     Active Substance: CITALOPRAM HYDROBROMIDE

REACTIONS (3)
  - Urethral stenosis [Unknown]
  - Pyelonephritis [Unknown]
  - Cystitis [Unknown]
